FAERS Safety Report 22737960 (Version 2)
Quarter: 2023Q4

REPORT INFORMATION
  Report Type: Spontaneous
  Country: FR (occurrence: FR)
  Receive Date: 20230721
  Receipt Date: 20231026
  Transmission Date: 20240110
  Serious: Yes (Hospitalization)
  Sender: FDA-Public Use
  Company Number: FR-SUN PHARMACEUTICAL INDUSTRIES LTD-2023RR-399330

PATIENT
  Age: 40 Year
  Sex: Female
  Weight: 38 kg

DRUGS (2)
  1. PANTOPRAZOLE [Suspect]
     Active Substance: PANTOPRAZOLE
     Indication: Gastrointestinal haemorrhage
     Dosage: 80 MILLIGRAM, DAILY, 80MG/DAY
     Route: 040
     Dates: start: 20230408, end: 20230413
  2. VORICONAZOLE [Suspect]
     Active Substance: VORICONAZOLE
     Indication: Mediastinitis
     Dosage: 300 MILLIGRAM, DAILY, 150 MG MORNING AND EVENING
     Route: 048
     Dates: start: 20230322, end: 20230413

REACTIONS (2)
  - Pancytopenia [Recovering/Resolving]
  - Cholestasis [Recovering/Resolving]
